FAERS Safety Report 6038467-8 (Version None)
Quarter: 2009Q1

REPORT INFORMATION
  Report Type: 
  Country: None (occurrence: None)
  Receive Date: 20090115
  Receipt Date: 20080131
  Transmission Date: 20090719
  Serious: No
  Sender: FDA-Public Use
  Company Number: US-KINGPHARMUSA00001-K200800155

PATIENT
  Sex: Female

DRUGS (1)
  1. EPIPEN [Suspect]
     Dates: start: 20080124, end: 20080124

REACTIONS (2)
  - ACCIDENTAL EXPOSURE [None]
  - DRUG EXPOSURE DURING PREGNANCY [None]
